FAERS Safety Report 7236605-2 (Version None)
Quarter: 2011Q1

REPORT INFORMATION
  Report Type: 
  Country: None (occurrence: None)
  Receive Date: 20110120
  Receipt Date: 20100414
  Transmission Date: 20110831
  Serious: No
  Sender: FDA-Public Use
  Company Number: US-BAUSCH-2010BL002023

PATIENT
  Age: 83 Year
  Sex: Male

DRUGS (5)
  1. TOBRAMYCIN [Suspect]
     Indication: EYE INFECTION
     Route: 047
  2. TOBRAMYCIN [Suspect]
     Indication: VISION BLURRED
     Route: 047
  3. TOBRAMYCIN [Suspect]
     Indication: PURULENT DISCHARGE
     Route: 047
  4. TOBRAMYCIN [Suspect]
     Indication: EYELID MARGIN CRUSTING
     Route: 047
  5. REFRESH [Concomitant]
     Indication: DRY EYE
     Route: 047

REACTIONS (4)
  - DRUG INEFFECTIVE FOR UNAPPROVED INDICATION [None]
  - EYE IRRITATION [None]
  - RETCHING [None]
  - COUGH [None]
